FAERS Safety Report 21237769 (Version 1)
Quarter: 2022Q3

REPORT INFORMATION
  Report Type: Spontaneous
  Country: US (occurrence: US)
  Receive Date: 20220822
  Receipt Date: 20220822
  Transmission Date: 20221026
  Serious: No
  Sender: FDA-Public Use
  Company Number: US-ELI_LILLY_AND_COMPANY-US202208010523

PATIENT
  Sex: Female

DRUGS (1)
  1. TRULICITY [Suspect]
     Active Substance: DULAGLUTIDE
     Indication: Hyperinsulinaemia
     Dosage: 3 MG, UNKNOWN
     Route: 058
     Dates: start: 2019

REACTIONS (2)
  - Incorrect dose administered [Unknown]
  - Off label use [Unknown]
